FAERS Safety Report 5345557-1 (Version None)
Quarter: 2007Q2

REPORT INFORMATION
  Report Type: 
  Country: None (occurrence: None)
  Receive Date: 20070601
  Receipt Date: 20070601
  Transmission Date: 20071010
  Serious: Yes (Hospitalization)
  Sender: FDA-Public Use
  Company Number: None

PATIENT
  Sex: Male
  Weight: 87 kg

DRUGS (1)
  1. METHOTREXATE [Suspect]
     Dosage: 40 MG

REACTIONS (12)
  - ANAEMIA [None]
  - APLASIA PURE RED CELL [None]
  - BLOOD IMMUNOGLOBULIN G DECREASED [None]
  - CARDIAC FAILURE CONGESTIVE [None]
  - DYSPNOEA AT REST [None]
  - FATIGUE [None]
  - FLUID RETENTION [None]
  - OEDEMA PERIPHERAL [None]
  - OXYGEN SATURATION DECREASED [None]
  - PULMONARY FUNCTION TEST ABNORMAL [None]
  - SINUS TACHYCARDIA [None]
  - SINUSITIS [None]
